FAERS Safety Report 25773739 (Version 1)
Quarter: 2025Q3

REPORT INFORMATION
  Report Type: Spontaneous
  Country: US (occurrence: US)
  Receive Date: 20250908
  Receipt Date: 20250908
  Transmission Date: 20251020
  Serious: Yes (Hospitalization)
  Sender: BAYER HEALTHCARE PHARMACEUTICALS INC.
  Company Number: US-BAYER-2025A117601

PATIENT
  Age: 81 Year
  Sex: Female

DRUGS (1)
  1. ADEMPAS [Suspect]
     Active Substance: RIOCIGUAT
     Indication: Pulmonary hypertension

REACTIONS (6)
  - Lung consolidation [None]
  - Acute kidney injury [None]
  - Fall [None]
  - Asthenia [None]
  - Dehydration [None]
  - Adverse event [None]

NARRATIVE: CASE EVENT DATE: 20250820
